FAERS Safety Report 9528129 (Version 1)
Quarter: 2013Q1

REPORT INFORMATION
  Report Type: Spontaneous
  Country: US (occurrence: None)
  Receive Date: 20130314
  Receipt Date: 20130314
  Transmission Date: 20140127
  Serious: No
  Sender: FDA-Public Use
  Company Number: 1212USA010791

PATIENT
  Age: 59 Year
  Sex: Female
  Weight: 101.6 kg

DRUGS (8)
  1. VICTRELIS (BOCEPREVIR) CAPSULE, 200MG [Suspect]
     Dosage: 4 DF, TID, ORAL
     Route: 048
     Dates: end: 20121203
  2. RIBAVIRIN [Suspect]
  3. PEGASYS (PEGINTERFERON ALFA-2A) INJECTION [Suspect]
     Dosage: 180 MICROGRAM, UNK
  4. VITAMINS (UNSPECIFIED) (VITAMINS (UNSPECIFIED)) CAPSULE? [Concomitant]
  5. VITAMIN E (VITAMIN E) CAPSULE [Concomitant]
  6. TYLENOL (ACETAMINOPHEN) TABLET, 325 MG [Concomitant]
  7. DEXILANT (DEXLANSOPRAZOLE) CAPSULE, 60 MG [Concomitant]
  8. ADVIL (IBUPROFEN) CAPSULE, 200 MG [Concomitant]

REACTIONS (5)
  - Hallucination [None]
  - Pneumonia [None]
  - Pain in extremity [None]
  - Rash generalised [None]
  - Arthralgia [None]
